FAERS Safety Report 8150326-3 (Version None)
Quarter: 2012Q1

REPORT INFORMATION
  Report Type: 
  Country: None (occurrence: None)
  Receive Date: 20120220
  Receipt Date: 20120213
  Transmission Date: 20120608
  Serious: Yes (Other)
  Sender: FDA-Public Use
  Company Number: US-BAYER-2011-100160

PATIENT
  Sex: Female
  Weight: 83.9 kg

DRUGS (1)
  1. MIRENA [Suspect]
     Indication: CONTRACEPTION
     Dosage: 20 MCG/24HR, CONT
     Route: 015
     Dates: start: 20111005, end: 20111012

REACTIONS (4)
  - ABDOMINAL PAIN [None]
  - DEVICE EXPULSION [None]
  - GENITAL HAEMORRHAGE [None]
  - DEVICE COMPONENT ISSUE [None]
